FAERS Safety Report 5467853-X (Version None)
Quarter: 2007Q3

REPORT INFORMATION
  Report Type: 
  Country: None (occurrence: None)
  Receive Date: 20070926
  Receipt Date: 20070919
  Transmission Date: 20080115
  Serious: Yes (Death)
  Sender: FDA-Public Use
  Company Number: DE-ELI_LILLY_AND_COMPANY-DE200709004034

PATIENT
  Sex: Male

DRUGS (4)
  1. ZYPREXA [Suspect]
     Dosage: 5 MG, DAILY (1/D)
  2. ZYPREXA [Suspect]
     Dosage: 2.5 MG, DAILY (1/D)
     Dates: start: 20060501
  3. ZOLOFT [Concomitant]
     Dosage: 100 MG, DAILY (1/D)
  4. ZOLOFT [Concomitant]
     Dosage: 50 MG, DAILY (1/D)
     Dates: start: 20060501

REACTIONS (2)
  - COMPLETED SUICIDE [None]
  - PHOBIA OF EXAMS [None]
